FAERS Safety Report 8258217-4 (Version None)
Quarter: 2012Q2

REPORT INFORMATION
  Report Type: 
  Country: None (occurrence: None)
  Receive Date: 20120404
  Receipt Date: 20120330
  Transmission Date: 20120825
  Serious: Yes (Hospitalization)
  Sender: FDA-Public Use
  Company Number: PHHY2012FR027961

PATIENT
  Sex: Female

DRUGS (1)
  1. RITALIN [Suspect]
     Dosage: 40 MG, UNK

REACTIONS (5)
  - CLONUS [None]
  - ACCIDENTAL EXPOSURE [None]
  - DYSKINESIA [None]
  - ABNORMAL BEHAVIOUR [None]
  - AGITATION [None]
